FAERS Safety Report 7747323-6 (Version None)
Quarter: 2011Q3

REPORT INFORMATION
  Report Type: 
  Country: None (occurrence: None)
  Receive Date: 20110913
  Receipt Date: 20110906
  Transmission Date: 20111222
  Serious: Yes (Death, Other)
  Sender: FDA-Public Use
  Company Number: TW-BRISTOL-MYERS SQUIBB COMPANY-16034191

PATIENT
  Age: 41 Year
  Sex: Female

DRUGS (6)
  1. EPIRUBICIN [Suspect]
     Indication: T-CELL LYMPHOMA STAGE IV
  2. GEMTUZUMAB OZOGAMICIN [Suspect]
  3. CYTARABINE [Suspect]
     Indication: ACUTE MYELOID LEUKAEMIA
     Dosage: NO OF COURSES:2
  4. VINCRISTINE [Suspect]
     Indication: T-CELL LYMPHOMA STAGE IV
  5. CYCLOPHOSPHAMIDE [Suspect]
     Indication: T-CELL LYMPHOMA STAGE IV
  6. PREDNISOLONE [Suspect]
     Indication: T-CELL LYMPHOMA STAGE IV

REACTIONS (2)
  - LEUKAEMIA CUTIS [None]
  - ACUTE MYELOID LEUKAEMIA [None]
